FAERS Safety Report 8085330-7 (Version None)
Quarter: 2012Q1

REPORT INFORMATION
  Report Type: 
  Country: None (occurrence: None)
  Receive Date: 20120128
  Receipt Date: 20110615
  Transmission Date: 20120608
  Serious: No
  Sender: FDA-Public Use
  Company Number: US-ABBOTT-09P-163-0575346-00

PATIENT
  Sex: Female
  Weight: 79.45 kg

DRUGS (1)
  1. HUMIRA [Suspect]
     Indication: PSORIATIC ARTHROPATHY
     Route: 058
     Dates: start: 20070101, end: 20110601

REACTIONS (6)
  - JOINT STIFFNESS [None]
  - ARTHROPATHY [None]
  - MUSCULAR WEAKNESS [None]
  - JOINT SWELLING [None]
  - PAIN IN EXTREMITY [None]
  - DRUG DOSE OMISSION [None]
